FAERS Safety Report 14481713 (Version 1)
Quarter: 2018Q1

REPORT INFORMATION
  Report Type: Spontaneous
  Country: US (occurrence: US)
  Receive Date: 20180202
  Receipt Date: 20180202
  Transmission Date: 20180509
  Serious: Yes (Hospitalization)
  Sender: FDA-Public Use
  Company Number: None

PATIENT
  Age: 62 Year
  Sex: Male
  Weight: 50.35 kg

DRUGS (8)
  1. AMLODIPINE [Concomitant]
     Active Substance: AMLODIPINE BESYLATE
  2. OMEPRAZOLE. [Concomitant]
     Active Substance: OMEPRAZOLE
  3. CLOZAPINE. [Suspect]
     Active Substance: CLOZAPINE
     Indication: SCHIZOAFFECTIVE DISORDER
     Dosage: 2 PILLS  200 MG BEDTIME MOUTH
     Route: 048
     Dates: start: 2001
  4. CLOZAPINE. [Suspect]
     Active Substance: CLOZAPINE
     Indication: PANIC ATTACK
     Dosage: 2 PILLS  200 MG BEDTIME MOUTH
     Route: 048
     Dates: start: 2001
  5. CLOZAPINE. [Suspect]
     Active Substance: CLOZAPINE
     Indication: SOCIAL AVOIDANT BEHAVIOUR
     Dosage: 2 PILLS  200 MG BEDTIME MOUTH
     Route: 048
     Dates: start: 2001
  6. ESCITALOPRAM [Concomitant]
     Active Substance: ESCITALOPRAM OXALATE
  7. BISACODYL. [Concomitant]
     Active Substance: BISACODYL
  8. CLOZAPINE. [Suspect]
     Active Substance: CLOZAPINE
     Indication: ANXIETY
     Dosage: 2 PILLS  200 MG BEDTIME MOUTH
     Route: 048
     Dates: start: 2001

REACTIONS (3)
  - Constipation [None]
  - Faecaloma [None]
  - Panic reaction [None]
